FAERS Safety Report 4441581-1 (Version None)
Quarter: 2004Q3

REPORT INFORMATION
  Report Type: 
  Country: None (occurrence: None)
  Receive Date: 20040903
  Receipt Date: 20040823
  Transmission Date: 20050211
  Serious: Yes (Death)
  Sender: FDA-Public Use
  Company Number: 2004S1002505

PATIENT
  Age: 80 Year
  Sex: Female

DRUGS (1)
  1. CLOZAPINE [Suspect]
     Dosage: 25MG HS,ORAL
     Route: 048
     Dates: start: 20040501

REACTIONS (2)
  - DYSPHAGIA [None]
  - URINARY TRACT INFECTION [None]
